FAERS Safety Report 6047367-9 (Version None)
Quarter: 2009Q1

REPORT INFORMATION
  Report Type: 
  Country: None (occurrence: None)
  Receive Date: 20090122
  Receipt Date: 20090114
  Transmission Date: 20090719
  Serious: Yes (Hospitalization)
  Sender: FDA-Public Use
  Company Number: IT-MERCK-0901ITA00001

PATIENT
  Age: 28 Year
  Sex: Male

DRUGS (1)
  1. MAXALT [Suspect]
     Indication: MIGRAINE
     Route: 048
     Dates: start: 20090103, end: 20090103

REACTIONS (5)
  - CONFUSIONAL STATE [None]
  - ENCEPHALITIS [None]
  - HYPERTENSIVE CRISIS [None]
  - PSYCHOMOTOR HYPERACTIVITY [None]
  - PYREXIA [None]
